FAERS Safety Report 17951137 (Version 5)
Quarter: 2020Q4

REPORT INFORMATION
  Report Type: Report from Study
  Country: US (occurrence: US)
  Receive Date: 20200626
  Receipt Date: 20201102
  Transmission Date: 20210113
  Serious: Yes (Other)
  Sender: FDA-Public Use
  Company Number: NVSC2020US175490

PATIENT
  Age: 8 Year
  Sex: Female
  Weight: 34.01 kg

DRUGS (4)
  1. ILARIS [Suspect]
     Active Substance: CANAKINUMAB
     Indication: JUVENILE IDIOPATHIC ARTHRITIS
     Dosage: 1 DF, Q4W (150 MG/ML)
     Route: 065
  2. ILARIS [Suspect]
     Active Substance: CANAKINUMAB
     Dosage: 300 MG, (EVERY 21 DAYS)
     Route: 058
     Dates: start: 202004
  3. ILARIS [Suspect]
     Active Substance: CANAKINUMAB
     Dosage: 1 DF, Q4W(UNDER THE SKIN)
     Route: 065
  4. ILARIS [Suspect]
     Active Substance: CANAKINUMAB
     Dosage: 300 MG, Q3W
     Route: 058

REACTIONS (3)
  - Rash [Not Recovered/Not Resolved]
  - Juvenile idiopathic arthritis [Unknown]
  - Rhinorrhoea [Not Recovered/Not Resolved]

NARRATIVE: CASE EVENT DATE: 20201015
